FAERS Safety Report 9122447 (Version 1)
Quarter: 2013Q1

REPORT INFORMATION
  Report Type: Spontaneous
  Country: US (occurrence: US)
  Receive Date: 20130114
  Receipt Date: 20130114
  Transmission Date: 20140127
  Serious: Yes (Other)
  Sender: FDA-Public Use
  Company Number: US-009507513-1301USA002988

PATIENT
  Age: 76 Year
  Sex: Male

DRUGS (6)
  1. MONTELUKAST SODIUM [Suspect]
     Indication: ASTHMA
     Route: 048
  2. ATROVENT [Suspect]
     Route: 055
  3. ALLOPURINOL [Suspect]
     Indication: GOUT
     Route: 048
  4. ENALAPRIL MALEATE [Suspect]
     Indication: HYPERTENSION
     Route: 048
  5. VENTOLIN (ALBUTEROL) [Suspect]
     Route: 065
  6. COMBIVENT [Concomitant]
     Route: 055

REACTIONS (2)
  - Dyspnoea [Unknown]
  - Asthma [Unknown]
